FAERS Safety Report 17649738 (Version 3)
Quarter: 2022Q2

REPORT INFORMATION
  Report Type: Spontaneous
  Country: US (occurrence: US)
  Receive Date: 20200409
  Receipt Date: 20220512
  Transmission Date: 20220720
  Serious: No
  Sender: FDA-Public Use
  Company Number: US-PFIZER INC-2020145451

PATIENT
  Age: 76 Year
  Sex: Male

DRUGS (2)
  1. SKELAXIN [Suspect]
     Active Substance: METAXALONE
     Indication: Pain
     Dosage: UNK
  2. SKELAXIN [Suspect]
     Active Substance: METAXALONE
     Indication: Inflammation
     Dosage: 800 MG, EVERY 8 HOURS AS NEEDED
     Route: 048

REACTIONS (4)
  - Spinal pain [Unknown]
  - Back pain [Unknown]
  - Pain [Unknown]
  - Confusional state [Unknown]
